FAERS Safety Report 12485513 (Version 1)
Quarter: 2016Q2

REPORT INFORMATION
  Report Type: Spontaneous
  Country: US (occurrence: US)
  Receive Date: 20160621
  Receipt Date: 20160621
  Transmission Date: 20160815
  Serious: No
  Sender: FDA-Public Use
  Company Number: US-SA-2016SA091573

PATIENT
  Age: 11 Year
  Sex: Male
  Weight: 39 kg

DRUGS (12)
  1. L-M-X [Concomitant]
     Dosage: 4%
     Route: 061
     Dates: start: 20160218
  2. LIDOCAINE. [Concomitant]
     Active Substance: LIDOCAINE
     Route: 061
     Dates: start: 20160218
  3. EPIPEN [Concomitant]
     Active Substance: EPINEPHRINE
     Indication: ANAPHYLACTIC REACTION
     Dates: start: 20160218
  4. DIPHENHYDRAMINE. [Concomitant]
     Active Substance: DIPHENHYDRAMINE
     Indication: ANAPHYLACTIC REACTION
     Dosage: DOSE:2.5 MILLIGRAM(S)/MILLILITRE
     Dates: start: 20160218
  5. HEPARIN [Concomitant]
     Active Substance: HEPARIN SODIUM
     Indication: FLUSHING
     Route: 042
     Dates: start: 20160218
  6. LEXAPRO [Concomitant]
     Active Substance: ESCITALOPRAM OXALATE
     Dosage: 5 MG
     Dates: start: 20150930
  7. SODIUM CHLORIDE. [Concomitant]
     Active Substance: SODIUM CHLORIDE
     Indication: FLUSHING
     Route: 042
     Dates: start: 20160218
  8. PRILOCAINE [Concomitant]
     Active Substance: PRILOCAINE
     Route: 061
     Dates: start: 20160218
  9. HUMALOG [Concomitant]
     Active Substance: INSULIN LISPRO
     Dosage: 1 UNIT SUBCUT AS DIRECTED
     Dates: start: 20150219
  10. LANTUS [Concomitant]
     Active Substance: INSULIN GLARGINE
     Dosage: 7 UNITS SUBCUT EVERY EVENING
     Dates: start: 20150219
  11. CEREZYME [Suspect]
     Active Substance: IMIGLUCERASE
     Indication: GAUCHER^S DISEASE
     Dosage: DOSE:71.79 UNIT(S)/KILOGRAM BODYWEIGHT
     Route: 042
  12. NORMAL SALINE [Concomitant]
     Active Substance: SODIUM CHLORIDE
     Indication: FLUSHING
     Route: 042
     Dates: start: 20160218

REACTIONS (2)
  - Dehydration [Recovering/Resolving]
  - Vomiting [Recovering/Resolving]
